FAERS Safety Report 19300883 (Version 1)
Quarter: 2021Q2

REPORT INFORMATION
  Report Type: Spontaneous
  Country: US (occurrence: US)
  Receive Date: 20210525
  Receipt Date: 20210525
  Transmission Date: 20210717
  Serious: No
  Sender: FDA-Public Use
  Company Number: US-AUROBINDO-AUR-APL-2014-06953

PATIENT
  Age: 63 Year
  Sex: Male
  Weight: 56.24 kg

DRUGS (3)
  1. METOPROLOL TARTRATE. [Concomitant]
     Active Substance: METOPROLOL TARTRATE
     Indication: BLOOD PRESSURE MEASUREMENT
     Dosage: 25 MG, DAILY
     Route: 065
  2. TRAMADOL 50MG [Suspect]
     Active Substance: TRAMADOL
     Indication: NEPHROLITHIASIS
     Dosage: 100 MG (TWO 50 MG), AS NECESSARY
     Route: 065
  3. TRAMADOL 50MG [Suspect]
     Active Substance: TRAMADOL
     Indication: HEADACHE

REACTIONS (3)
  - Drug ineffective [Unknown]
  - Off label use [Unknown]
  - Nephrolithiasis [Unknown]

NARRATIVE: CASE EVENT DATE: 20140606
